FAERS Safety Report 15235692 (Version 2)
Quarter: 2018Q3

REPORT INFORMATION
  Report Type: Report from Study
  Country: GB (occurrence: GB)
  Receive Date: 20180803
  Receipt Date: 20180820
  Transmission Date: 20181010
  Serious: Yes (Death, Hospitalization)
  Sender: FDA-Public Use
  Company Number: GB-ROCHE-2163041

PATIENT
  Sex: Male

DRUGS (4)
  1. GABAPENTIN. [Concomitant]
     Active Substance: GABAPENTIN
     Dosage: SLOW AND QUICK RELEASE
     Route: 065
  2. OXYCONTIN [Concomitant]
     Active Substance: OXYCODONE HYDROCHLORIDE
     Dosage: 60 MG TO 10 MG
     Route: 065
  3. ESBRIET [Suspect]
     Active Substance: PIRFENIDONE
     Indication: IDIOPATHIC PULMONARY FIBROSIS
     Route: 048
  4. ESBRIET [Suspect]
     Active Substance: PIRFENIDONE
     Route: 048
     Dates: start: 20170826

REACTIONS (13)
  - Death [Fatal]
  - Productive cough [Unknown]
  - Memory impairment [Unknown]
  - Pain [Unknown]
  - Pulmonary function test decreased [Unknown]
  - Fatigue [Unknown]
  - Cough [Unknown]
  - Dyspnoea [Unknown]
  - Back pain [Unknown]
  - Asthenia [Unknown]
  - Sleep disorder [Unknown]
  - Pneumonia [Unknown]
  - Myalgia [Unknown]
